FAERS Safety Report 10055398 (Version 1)
Quarter: 2014Q2

REPORT INFORMATION
  Report Type: Spontaneous
  Country: US (occurrence: US)
  Receive Date: 20140403
  Receipt Date: 20140403
  Transmission Date: 20141212
  Serious: No
  Sender: FDA-Public Use
  Company Number: US-BIOGENIDEC-2014BI029543

PATIENT
  Sex: Female

DRUGS (9)
  1. AVONEX [Suspect]
     Indication: MULTIPLE SCLEROSIS
     Route: 030
     Dates: start: 1999
  2. DIMETHYL FUMARATE [Concomitant]
  3. XANAX [Concomitant]
  4. IMITREX [Concomitant]
  5. PROZAC [Concomitant]
  6. VITAMIN D3 [Concomitant]
  7. MULTIVITAMIN [Concomitant]
     Route: 048
  8. NORCO [Concomitant]
  9. MOTRIN [Concomitant]

REACTIONS (7)
  - Migraine [Unknown]
  - Diverticulum intestinal [Unknown]
  - Deafness [Unknown]
  - Renal cyst [Unknown]
  - Haematuria [Unknown]
  - Pulmonary mass [Unknown]
  - Haemangioma [Unknown]
